FAERS Safety Report 17109776 (Version 5)
Quarter: 2022Q1

REPORT INFORMATION
  Report Type: Report from Study
  Country: US (occurrence: US)
  Receive Date: 20191204
  Receipt Date: 20220204
  Transmission Date: 20220423
  Serious: No
  Sender: FDA-Public Use
  Company Number: US-SAGE-2019SAGE000060

PATIENT
  Sex: Female

DRUGS (1)
  1. ZULRESSO [Suspect]
     Active Substance: BREXANOLONE
     Indication: Perinatal depression
     Dosage: UNK
     Route: 042
     Dates: start: 20191017, end: 20191019

REACTIONS (2)
  - Euphoric mood [Unknown]
  - Perinatal depression [Not Recovered/Not Resolved]

NARRATIVE: CASE EVENT DATE: 20200101
